FAERS Safety Report 13435028 (Version 1)
Quarter: 2017Q2

REPORT INFORMATION
  Report Type: Spontaneous
  Country: US (occurrence: US)
  Receive Date: 20170412
  Receipt Date: 20170412
  Transmission Date: 20170830
  Serious: No
  Sender: FDA-Public Use
  Company Number: US-SA-2016SA085439

PATIENT
  Age: 33 Year
  Sex: Male
  Weight: 82 kg

DRUGS (2)
  1. ALLEGRA [Suspect]
     Active Substance: FEXOFENADINE HYDROCHLORIDE
     Indication: NASAL CONGESTION
     Dosage: STOP DATE: 5 DAYS AGO
     Route: 048
     Dates: start: 20160422, end: 20160509
  2. ALLEGRA [Suspect]
     Active Substance: FEXOFENADINE HYDROCHLORIDE
     Indication: MULTIPLE ALLERGIES
     Dosage: STOP DATE: 5 DAYS AGO
     Route: 048
     Dates: start: 20160422, end: 20160509

REACTIONS (3)
  - Drug ineffective [Unknown]
  - Pain in extremity [Unknown]
  - Dizziness [Recovered/Resolved]

NARRATIVE: CASE EVENT DATE: 20160426
